FAERS Safety Report 4536410-1 (Version None)
Quarter: 2004Q4

REPORT INFORMATION
  Report Type: 
  Country: None (occurrence: None)
  Receive Date: 20041223
  Receipt Date: 20040927
  Transmission Date: 20050328
  Serious: No
  Sender: FDA-Public Use
  Company Number: US-GLAXOSMITHKLINE-A0527422A

PATIENT
  Age: 72 Year
  Sex: Male

DRUGS (2)
  1. FLONASE [Suspect]
     Dosage: 50MCG TWICE PER DAY
     Route: 045
     Dates: start: 20040701, end: 20040701
  2. NO CONCURRENT MEDICATION [Concomitant]

REACTIONS (1)
  - SINUSITIS [None]
